FAERS Safety Report 18061210 (Version 2)
Quarter: 2022Q3

REPORT INFORMATION
  Report Type: Other
  Country: CA (occurrence: CA)
  Receive Date: 20200723
  Receipt Date: 20220901
  Transmission Date: 20221026
  Serious: Yes (Hospitalization, Other)
  Sender: FDA-Public Use
  Company Number: CA-APOTEX-2020AP014132

PATIENT
  Age: 18 Year
  Sex: Male

DRUGS (2)
  1. XOLAIR [Suspect]
     Active Substance: OMALIZUMAB
     Indication: Asthma
     Dosage: 150 MILLIGRAM, Q.M.T.
     Route: 058
  2. XOLAIR [Suspect]
     Active Substance: OMALIZUMAB
     Dosage: UNK
     Route: 058

REACTIONS (17)
  - Weight increased [Not Recovered/Not Resolved]
  - Asthma [Not Recovered/Not Resolved]
  - Bronchospasm [Not Recovered/Not Resolved]
  - Dyspnoea [Not Recovered/Not Resolved]
  - Fibrosis [Not Recovered/Not Resolved]
  - Forced expiratory volume decreased [Not Recovered/Not Resolved]
  - Heart rate increased [Not Recovered/Not Resolved]
  - Increased bronchial secretion [Not Recovered/Not Resolved]
  - Increased viscosity of bronchial secretion [Not Recovered/Not Resolved]
  - Influenza [Not Recovered/Not Resolved]
  - Malaise [Not Recovered/Not Resolved]
  - Moaning [Not Recovered/Not Resolved]
  - Nasopharyngitis [Not Recovered/Not Resolved]
  - Pneumonia [Not Recovered/Not Resolved]
  - Sputum discoloured [Not Recovered/Not Resolved]
  - Cough [Not Recovered/Not Resolved]
  - Heart rate decreased [Not Recovered/Not Resolved]
